FAERS Safety Report 20797714 (Version 1)
Quarter: 2022Q2

REPORT INFORMATION
  Report Type: Spontaneous
  Country: US (occurrence: None)
  Receive Date: 20220506
  Receipt Date: 20220506
  Transmission Date: 20220721
  Serious: No
  Sender: FDA-Public Use
  Company Number: 2022A141155

PATIENT
  Age: 30284 Day
  Sex: Male
  Weight: 63.5 kg

DRUGS (3)
  1. QTERN [Suspect]
     Active Substance: DAPAGLIFLOZIN\SAXAGLIPTIN HYDROCHLORIDE
     Indication: Type 2 diabetes mellitus
     Route: 048
     Dates: start: 20220304
  2. QTERN [Concomitant]
     Active Substance: DAPAGLIFLOZIN\SAXAGLIPTIN HYDROCHLORIDE
     Indication: Type 2 diabetes mellitus
     Route: 048
     Dates: start: 20220307
  3. SYMBICORT [Concomitant]
     Active Substance: BUDESONIDE\FORMOTEROL FUMARATE DIHYDRATE
     Indication: Chronic obstructive pulmonary disease
     Dosage: 160/4.5MCG, 2 PUFFS, TWICE DAILY
     Route: 055
     Dates: start: 2021

REACTIONS (4)
  - Blood glucose increased [Recovering/Resolving]
  - Wrong technique in product usage process [Unknown]
  - Product dispensing error [Unknown]
  - Expired product administered [Unknown]

NARRATIVE: CASE EVENT DATE: 20220304
